FAERS Safety Report 22395675 (Version 2)
Quarter: 2023Q2

REPORT INFORMATION
  Report Type: Spontaneous
  Country: HK (occurrence: HK)
  Receive Date: 20230601
  Receipt Date: 20230612
  Transmission Date: 20230722
  Serious: Yes (Hospitalization)
  Sender: FDA-Public Use
  Company Number: HK-TEVA-2023-HK-2891976

PATIENT
  Age: 14 Year
  Sex: Male

DRUGS (19)
  1. DIAZEPAM [Suspect]
     Active Substance: DIAZEPAM
     Indication: Dystonia
     Route: 048
  2. DIAZEPAM [Suspect]
     Active Substance: DIAZEPAM
     Indication: Dyskinesia
  3. CARBAMAZEPINE [Suspect]
     Active Substance: CARBAMAZEPINE
     Indication: Epilepsy
     Route: 065
  4. BACLOFEN [Suspect]
     Active Substance: BACLOFEN
     Indication: Movement disorder
     Route: 065
  5. TETRABENAZINE [Suspect]
     Active Substance: TETRABENAZINE
     Indication: Movement disorder
     Route: 065
  6. CLOBAZAM [Suspect]
     Active Substance: CLOBAZAM
     Indication: Epilepsy
     Route: 065
  7. MIDAZOLAM [Suspect]
     Active Substance: MIDAZOLAM
     Indication: Dystonia
     Dosage: 0.2 MG/KG/H
     Route: 041
  8. MIDAZOLAM [Suspect]
     Active Substance: MIDAZOLAM
     Indication: Dyskinesia
  9. MORPHINE [Suspect]
     Active Substance: MORPHINE
     Indication: Dystonia
     Dosage: 20 MICROG/KG/H
     Route: 041
  10. MORPHINE [Suspect]
     Active Substance: MORPHINE
     Indication: Dyskinesia
     Route: 048
  11. MORPHINE [Suspect]
     Active Substance: MORPHINE
     Dosage: 12 MILLIGRAM DAILY; 3 MG EVERY 6 HOURS
     Route: 048
  12. CLONIDINE [Suspect]
     Active Substance: CLONIDINE
     Indication: Dystonia
     Dosage: 1.74 UG/KG DAILY; 0.58 MICROG/KG/DOSE EVERY 8H
     Route: 048
  13. CLONIDINE [Suspect]
     Active Substance: CLONIDINE
     Indication: Dyskinesia
     Dosage: .2 MILLIGRAM DAILY; 0.05 MG EVERY 6H
     Route: 048
  14. CHLORAL HYDRATE [Suspect]
     Active Substance: CHLORAL HYDRATE
     Indication: Dyskinesia
     Dosage: 92 MG/KG DAILY; 23 MG/KG/DOSE EVERY 6H
     Route: 048
  15. CHLORAL HYDRATE [Suspect]
     Active Substance: CHLORAL HYDRATE
     Indication: Dystonia
     Dosage: 500 MILLIGRAM DAILY; ONCE A DAY
     Route: 048
  16. FUROSEMIDE [Suspect]
     Active Substance: FUROSEMIDE
     Indication: Hypervolaemia
     Dosage: 1.2 MG/KG/H
     Route: 050
  17. FUROSEMIDE [Suspect]
     Active Substance: FUROSEMIDE
     Indication: Prophylaxis
  18. KETAMINE [Suspect]
     Active Substance: KETAMINE
     Indication: Dystonia
     Dosage: 5 MICROG/KG/MINUTE
     Route: 041
  19. KETAMINE [Suspect]
     Active Substance: KETAMINE
     Indication: Dyskinesia

REACTIONS (9)
  - Sedation complication [Recovering/Resolving]
  - Respiratory failure [Recovering/Resolving]
  - Hypoventilation [Recovering/Resolving]
  - Acute kidney injury [Recovering/Resolving]
  - Hyperphosphataemia [Recovering/Resolving]
  - Metabolic acidosis [Recovering/Resolving]
  - Hypotension [Recovering/Resolving]
  - Rhabdomyolysis [Recovering/Resolving]
  - Drug ineffective [Unknown]
